FAERS Safety Report 9555194 (Version 1)
Quarter: 2013Q3

REPORT INFORMATION
  Report Type: Spontaneous
  Country: US (occurrence: None)
  Receive Date: 20130821
  Receipt Date: 20130821
  Transmission Date: 20140515
  Serious: Yes (Other)
  Sender: FDA-Public Use
  Company Number: 2013-001662

PATIENT
  Age: 45 Year
  Sex: Female

DRUGS (1)
  1. LO LOESTRIN FE (NORETHINDRONE ACETATE, ETHINYLESTRADIOL, FERROUS FUMARATE) TABLET, 1000/10UG [Suspect]
     Indication: MENOMETRORRHAGIA
     Route: 048
     Dates: start: 201211, end: 201305

REACTIONS (2)
  - Pulmonary embolism [None]
  - Dyspnoea [None]
